FAERS Safety Report 7509545-9 (Version None)
Quarter: 2011Q2

REPORT INFORMATION
  Report Type: 
  Country: None (occurrence: None)
  Receive Date: 20110527
  Receipt Date: 20110524
  Transmission Date: 20111010
  Serious: Yes (Death)
  Sender: FDA-Public Use
  Company Number: US-ASTRAZENECA-2009UW10372

PATIENT
  Age: 20325 Day
  Sex: Male

DRUGS (8)
  1. SEROQUEL [Suspect]
     Route: 048
     Dates: start: 20030101, end: 20060101
  2. MONOPRIL [Concomitant]
     Dosage: 2 BID
     Dates: start: 20020101
  3. HYTRIN [Concomitant]
     Dates: end: 20020920
  4. SEROQUEL [Suspect]
     Indication: DEPRESSION
     Route: 048
     Dates: start: 20020101, end: 20060201
  5. TENEX [Concomitant]
     Indication: BLOOD PRESSURE
     Dosage: 2 MG , 1/2 UPTO 1  UPTO 1 1/2 AT NIGHT
     Dates: start: 20020920
  6. ZYPREXA [Concomitant]
     Dates: start: 20030301
  7. ZOCOR [Concomitant]
     Dates: start: 20020101
  8. TIAZAC [Concomitant]
     Dosage: 420 1 A DAY
     Dates: start: 20020405

REACTIONS (2)
  - DIABETES MELLITUS [None]
  - DEATH [None]
